FAERS Safety Report 13109056 (Version 1)
Quarter: 2017Q1

REPORT INFORMATION
  Report Type: Spontaneous
  Country: NO (occurrence: NO)
  Receive Date: 20170112
  Receipt Date: 20170112
  Transmission Date: 20170428
  Serious: Yes (Disabling)
  Sender: FDA-Public Use
  Company Number: NO-PFIZER INC-2017010827

PATIENT
  Age: 69 Year
  Sex: Female
  Weight: 75 kg

DRUGS (11)
  1. MULTIVITAMIN [Concomitant]
     Active Substance: VITAMINS
     Indication: SUPPLEMENTATION THERAPY
     Dosage: DIETARY SUPPLEMENT WITH VITAMINS
  2. PLAQUENIL [Concomitant]
     Active Substance: HYDROXYCHLOROQUINE SULFATE
     Dates: start: 2009
  3. CALCIGRAN FORTE [Concomitant]
  4. VITAMIN D3 [Concomitant]
     Active Substance: CHOLECALCIFEROL
     Indication: SUPPLEMENTATION THERAPY
     Dosage: DIETARY SUPPLEMENT WITH VITAMIN D3
  5. CETIRIZIN BLUEFISH [Concomitant]
     Indication: HYPERSENSITIVITY
     Dates: start: 2014
  6. SEAL OIL [Concomitant]
  7. IRBESARTAN/HYDROKLORTIAZID ACTAVIS [Concomitant]
     Indication: HYPERTENSION
     Dates: start: 2014
  8. ARTHROTEC [Suspect]
     Active Substance: DICLOFENAC SODIUM\MISOPROSTOL
     Indication: PAIN
     Dosage: 1-2 TABLETS A DAY AS NEEDED
     Dates: start: 20160901, end: 20161201
  9. OMEGA-3 ACIDS [Concomitant]
     Active Substance: OMEGA-3 FATTY ACIDS
     Indication: SUPPLEMENTATION THERAPY
     Dosage: DIETARY SUPPLEMENT WITH OMEGA-3
  10. GLUCOSAMIN ORIFARM [Concomitant]
     Indication: OSTEOARTHRITIS
     Dates: start: 2000
  11. ESOMEPRAZOL KRKA [Concomitant]
     Indication: GASTROOESOPHAGEAL REFLUX DISEASE
     Dates: start: 2015

REACTIONS (4)
  - Condition aggravated [Not Recovered/Not Resolved]
  - Photosensitivity reaction [Not Recovered/Not Resolved]
  - Temperature intolerance [Not Recovered/Not Resolved]
  - Hypersensitivity [Unknown]

NARRATIVE: CASE EVENT DATE: 20161115
